FAERS Safety Report 10202011 (Version 1)
Quarter: 2014Q2

REPORT INFORMATION
  Report Type: Report from Study
  Country: IT (occurrence: IT)
  Receive Date: 20140528
  Receipt Date: 20140528
  Transmission Date: 20141212
  Serious: Yes (Other)
  Sender: FDA-Public Use
  Company Number: IT-ROCHE-1406192

PATIENT
  Sex: 0

DRUGS (1)
  1. CAPECITABINE [Suspect]
     Indication: RECTAL CANCER
     Dosage: FOR 5 DAYS A WEEK
     Route: 048

REACTIONS (8)
  - Proctitis [Unknown]
  - Diarrhoea [Unknown]
  - Leukopenia [Unknown]
  - Cystitis [Unknown]
  - Nausea [Unknown]
  - Vomiting [Unknown]
  - Abdominal pain [Unknown]
  - Pelvic pain [Unknown]
